FAERS Safety Report 6943559-2 (Version None)
Quarter: 2010Q3

REPORT INFORMATION
  Report Type: 
  Country: None (occurrence: None)
  Receive Date: 20100826
  Receipt Date: 20100816
  Transmission Date: 20110219
  Serious: Yes (Hospitalization, Other)
  Sender: FDA-Public Use
  Company Number: AU-ELI_LILLY_AND_COMPANY-AU201006003707

PATIENT
  Age: 62 Year
  Sex: Male

DRUGS (4)
  1. ALIMTA [Suspect]
     Indication: MESOTHELIOMA
     Dosage: 500 MG/M2, EVERY 3 WEEKS
     Route: 065
     Dates: start: 20100527
  2. CISPLATIN [Concomitant]
     Dosage: 500 MG/M2, EVERY 3 WEEKS
     Route: 065
     Dates: start: 20100527
  3. VITAMIN B-12 [Concomitant]
     Indication: SUPPLEMENTATION THERAPY
  4. FOLIC ACID [Concomitant]
     Indication: SUPPLEMENTATION THERAPY

REACTIONS (2)
  - INTUSSUSCEPTION [None]
  - PANCREATITIS ACUTE [None]
